FAERS Safety Report 15334759 (Version 4)
Quarter: 2019Q2

REPORT INFORMATION
  Report Type: Report from Study
  Country: JP (occurrence: JP)
  Receive Date: 20180830
  Receipt Date: 20190515
  Transmission Date: 20190711
  Serious: Yes (Other)
  Sender: FDA-Public Use
  Company Number: JP-JNJFOC-20180838469

PATIENT
  Age: 73 Year
  Sex: Female
  Weight: 42 kg

DRUGS (14)
  1. TRAMCET [Concomitant]
     Active Substance: ACETAMINOPHEN\TRAMADOL
     Route: 048
  2. BAKTAR [Concomitant]
     Active Substance: SULFAMETHOXAZOLE\TRIMETHOPRIM
     Indication: PROPHYLAXIS
     Route: 048
     Dates: start: 20161101
  3. FLUCONAZOLE. [Concomitant]
     Active Substance: FLUCONAZOLE
     Indication: PROPHYLAXIS
     Route: 048
     Dates: start: 20161101
  4. AZULENE [Concomitant]
     Active Substance: AZULENE
     Route: 049
  5. IMBRUVICA [Suspect]
     Active Substance: IBRUTINIB
     Indication: MANTLE CELL LYMPHOMA RECURRENT
     Route: 048
     Dates: start: 20161101, end: 20170629
  6. FLUCONAZOLE. [Concomitant]
     Active Substance: FLUCONAZOLE
     Indication: PROPHYLAXIS
     Route: 048
     Dates: start: 20170209
  7. SHAKUYAKUKANZOTO [Concomitant]
     Active Substance: HERBALS
     Route: 048
     Dates: start: 20170420
  8. AMLODIPINE BESILATE [Concomitant]
     Active Substance: AMLODIPINE BESYLATE
     Route: 048
     Dates: start: 20170406
  9. MAGMITT [Concomitant]
     Active Substance: MAGNESIUM OXIDE
     Route: 048
  10. LUNESTA [Concomitant]
     Active Substance: ESZOPICLONE
     Route: 048
  11. ACICLOVIR [Concomitant]
     Active Substance: ACYCLOVIR
     Indication: PROPHYLAXIS
     Route: 048
     Dates: start: 20161109
  12. NEXIUM [Concomitant]
     Active Substance: ESOMEPRAZOLE MAGNESIUM
     Route: 048
  13. IMBRUVICA [Suspect]
     Active Substance: IBRUTINIB
     Indication: MANTLE CELL LYMPHOMA RECURRENT
     Route: 048
     Dates: start: 20170727
  14. LYRICA [Concomitant]
     Active Substance: PREGABALIN
     Route: 048

REACTIONS (4)
  - Bone marrow failure [Recovered/Resolved]
  - Paronychia [Recovered/Resolved]
  - Rash [Recovered/Resolved]
  - Ingrowing nail [Recovering/Resolving]

NARRATIVE: CASE EVENT DATE: 20161117
